FAERS Safety Report 7623594-1 (Version None)
Quarter: 2011Q3

REPORT INFORMATION
  Report Type: 
  Country: None (occurrence: None)
  Receive Date: 20110712
  Receipt Date: 20110628
  Transmission Date: 20111222
  Serious: Yes (Death, Hospitalization)
  Sender: FDA-Public Use
  Company Number: 2010AC000356

PATIENT
  Age: 86 Year
  Sex: Female

DRUGS (2)
  1. INSULIN [Concomitant]
  2. DIGOXIN [Suspect]
     Dosage: 0.125 MG;QD;PO
     Route: 048
     Dates: start: 20031001, end: 20080430

REACTIONS (10)
  - MUSCULAR WEAKNESS [None]
  - RENAL FAILURE [None]
  - PALPITATIONS [None]
  - PAIN [None]
  - ECONOMIC PROBLEM [None]
  - CARDIOPULMONARY FAILURE [None]
  - DECREASED APPETITE [None]
  - INJURY [None]
  - PNEUMONIA [None]
  - CONFUSIONAL STATE [None]
